FAERS Safety Report 5915055-2 (Version None)
Quarter: 2008Q4

REPORT INFORMATION
  Report Type: 
  Country: None (occurrence: None)
  Receive Date: 20081010
  Receipt Date: 20081002
  Transmission Date: 20090506
  Serious: Yes (Congenital Anomaly)
  Sender: FDA-Public Use
  Company Number: A0731543A

PATIENT
  Sex: Male

DRUGS (2)
  1. PAXIL [Suspect]
     Indication: ANXIETY
     Dosage: 40MG PER DAY
     Dates: start: 20000101
  2. VITAMIN TAB [Concomitant]

REACTIONS (10)
  - APERT'S SYNDROME [None]
  - ATRIAL SEPTAL DEFECT [None]
  - CHOANAL ATRESIA [None]
  - CONGENITAL AORTIC VALVE INCOMPETENCE [None]
  - CRANIOSYNOSTOSIS [None]
  - DRUG EXPOSURE DURING PREGNANCY [None]
  - MACROGNATHIA [None]
  - PATENT DUCTUS ARTERIOSUS [None]
  - SYNDACTYLY [None]
  - TOOTH DISORDER [None]
